FAERS Safety Report 5362886-6 (Version None)
Quarter: 2007Q2

REPORT INFORMATION
  Report Type: 
  Country: None (occurrence: None)
  Receive Date: 20070612
  Receipt Date: 20070604
  Transmission Date: 20071010
  Serious: Yes (Other)
  Sender: FDA-Public Use
  Company Number: B0474627A

PATIENT
  Age: 50 Year
  Sex: Male

DRUGS (2)
  1. SALBUTAMOL SULPHATE INFUSION (GENERIC) (ALBUTEROL SULFATE) [Suspect]
  2. TERBUTALINE SULFATE [Suspect]
     Dosage: UNK / UNKNOWN / INHALED
     Route: 055

REACTIONS (2)
  - BLOOD LACTIC ACID DECREASED [None]
  - METABOLIC ACIDOSIS [None]
